FAERS Safety Report 9602255 (Version 1)
Quarter: 2013Q4

REPORT INFORMATION
  Report Type: Spontaneous
  Country: IN (occurrence: None)
  Receive Date: 20131003
  Receipt Date: 20131003
  Transmission Date: 20140711
  Serious: Yes (Other)
  Sender: FDA-Public Use
  Company Number: KAD201309-001263

PATIENT
  Age: 5 Year
  Sex: Male

DRUGS (5)
  1. AMPHOTERICIN B [Suspect]
     Indication: BRAIN ABSCESS
     Route: 042
  2. VORICONAZOLE [Suspect]
  3. FLUCYTOSINE [Suspect]
  4. POSACONAZOLE [Suspect]
     Route: 048
  5. AMPHOTERICIN B [Suspect]

REACTIONS (4)
  - Convulsion [None]
  - Immunosuppression [None]
  - Off label use [None]
  - Drug effect decreased [None]
